FAERS Safety Report 5935010-6 (Version None)
Quarter: 2008Q4

REPORT INFORMATION
  Report Type: 
  Country: None (occurrence: None)
  Receive Date: 20081015
  Receipt Date: 20080909
  Transmission Date: 20090506
  Serious: Yes (Other)
  Sender: FDA-Public Use
  Company Number: CHPA2008US14249

PATIENT
  Age: 30 Year
  Sex: Female

DRUGS (2)
  1. NICOTINE [Suspect]
     Indication: TOBACCO USER
     Dosage: ORAL
     Route: 048
  2. NICOTINE [Suspect]
     Indication: TOBACCO USER
     Dosage: 21 MG, 1 PATCH DAILY DURING DAYTIME, TRANSDERMAL
     Route: 062
     Dates: start: 20080824, end: 20080825

REACTIONS (3)
  - INTENTIONAL DRUG MISUSE [None]
  - NICOTINE DEPENDENCE [None]
  - NIGHTMARE [None]
